FAERS Safety Report 6745670-8 (Version None)
Quarter: 2010Q2

REPORT INFORMATION
  Report Type: 
  Country: None (occurrence: None)
  Receive Date: 20100528
  Receipt Date: 20100519
  Transmission Date: 20101027
  Serious: Yes (Other)
  Sender: FDA-Public Use
  Company Number: CH-NOVOPROD-308972

PATIENT
  Age: 84 Year
  Sex: Male

DRUGS (12)
  1. VICTOZA [Suspect]
     Indication: TYPE 2 DIABETES MELLITUS
     Dates: start: 20100101
  2. IRBESARTAN [Concomitant]
     Dosage: UNKNOWN
     Dates: end: 20100222
  3. ZANEDIP [Concomitant]
     Dosage: UNKNOWN
  4. ASPIRIN [Concomitant]
     Dosage: UNKNOWN
  5. LANTUS [Concomitant]
     Dosage: UNKNOWN
  6. NEXIUM [Concomitant]
     Dosage: UNKNOWN
  7. SORTIS                             /01326101/ [Concomitant]
     Dosage: UNKNOWN
  8. ZOLOFT [Concomitant]
     Dosage: UNKNOWN
  9. COZAAR [Concomitant]
     Dosage: UNKNOWN
     Dates: end: 20100222
  10. BENERVA [Concomitant]
     Dosage: UNKNOWN
  11. VITAMIN B-12 [Concomitant]
     Dosage: UNKNOWN
  12. VESICARE [Concomitant]
     Dosage: UNKNOWN

REACTIONS (2)
  - BLOOD CREATININE INCREASED [None]
  - TUBULOINTERSTITIAL NEPHRITIS [None]
